FAERS Safety Report 13996915 (Version 6)
Quarter: 2018Q3

REPORT INFORMATION
  Report Type: Spontaneous
  Country: US (occurrence: US)
  Receive Date: 20170921
  Receipt Date: 20180802
  Transmission Date: 20181010
  Serious: Yes (Disabling, Other)
  Sender: FDA-Public Use
  Company Number: US-PFIZER INC-2017405635

PATIENT
  Age: 81 Year
  Sex: Female
  Weight: 55.34 kg

DRUGS (22)
  1. IBRANCE [Suspect]
     Active Substance: PALBOCICLIB
     Indication: RHEUMATOID ARTHRITIS
     Dosage: 125 MG, CYCLIC (DAILY 21 DAYS ON, 7 DAYS OFF)
     Route: 048
     Dates: start: 20161122
  2. IBUPROFEN. [Concomitant]
     Active Substance: IBUPROFEN
     Dosage: UNK
  3. LUTEIN [Concomitant]
     Active Substance: LUTEIN
     Dosage: UNK
  4. CALCIUM [Concomitant]
     Active Substance: CALCIUM
     Dosage: 600 MG, UNK
  5. CELEBREX [Concomitant]
     Active Substance: CELECOXIB
     Indication: RHEUMATOID ARTHRITIS
     Dosage: 200 MG, AS NEEDED (QID)
     Route: 048
     Dates: start: 2014
  6. XELJANZ [Concomitant]
     Active Substance: TOFACITINIB CITRATE
     Dosage: 5 MG, DAILY
  7. XELJANZ [Concomitant]
     Active Substance: TOFACITINIB CITRATE
     Dosage: 5 MG, UNK
  8. CLARITIN [Concomitant]
     Active Substance: LORATADINE
     Dosage: 10 MG, UNK
  9. PLAQUENIL [Concomitant]
     Active Substance: HYDROXYCHLOROQUINE SULFATE
     Dosage: 200 MG, UNK
  10. METHYLPREDNISOLONE. [Concomitant]
     Active Substance: METHYLPREDNISOLONE
     Indication: RHEUMATOID ARTHRITIS
     Dosage: 4 MG, 2X/DAY
     Route: 048
     Dates: start: 2014
  11. PROLIA [Concomitant]
     Active Substance: DENOSUMAB
     Dosage: UNK
  12. ANASTROZOLE. [Concomitant]
     Active Substance: ANASTROZOLE
     Indication: BLOOD OESTROGEN ABNORMAL
     Dosage: 1 MG, DAILY
     Dates: start: 20160922
  13. ANASTROZOLE. [Concomitant]
     Active Substance: ANASTROZOLE
     Indication: BREAST CANCER STAGE IV
     Dosage: 1 MG, DAILY
     Route: 048
     Dates: start: 20160923
  14. CALCIUM CARBONATE. [Concomitant]
     Active Substance: CALCIUM CARBONATE
     Indication: ANTACID THERAPY
     Dosage: UNK
  15. IBRANCE [Suspect]
     Active Substance: PALBOCICLIB
     Dosage: 125 MG, CYCLIC (ONCE DAILY WITH FOOD FOR 21 DAYS, THEN 7 DAYS OFF)
     Route: 048
     Dates: start: 201711
  16. IBUPROFEN. [Concomitant]
     Active Substance: IBUPROFEN
     Dosage: 800 MG, UNK
  17. PRESERVISION [Concomitant]
     Active Substance: MINERALS\VITAMINS
     Dosage: UNK
  18. IBRANCE [Suspect]
     Active Substance: PALBOCICLIB
     Indication: BREAST CANCER METASTATIC
     Dosage: 125 MG, CYCLIC (1 CAPSULE/DAY FOR 21 DAYS THEN FOR 7 DAYS)
     Route: 048
     Dates: start: 20161103
  19. PLAQUENIL [Concomitant]
     Active Substance: HYDROXYCHLOROQUINE SULFATE
     Indication: RHEUMATOID ARTHRITIS
     Dosage: 200 MG, 2X/DAY
  20. IBRANCE [Suspect]
     Active Substance: PALBOCICLIB
     Dosage: 125 MG, CYCLIC (ONCE DAILY WITH FOOD FOR 21 DAYS, THEN 7 DAYS OFF)
     Route: 048
     Dates: start: 20171117
  21. PLAQUENIL [Concomitant]
     Active Substance: HYDROXYCHLOROQUINE SULFATE
     Dosage: 100 MG, 2X/DAY
     Route: 048
     Dates: start: 2014
  22. METHYLPREDNISOLONE. [Concomitant]
     Active Substance: METHYLPREDNISOLONE
     Dosage: 125 MG, UNK

REACTIONS (10)
  - Joint swelling [Recovered/Resolved with Sequelae]
  - Dysgeusia [Not Recovered/Not Resolved]
  - Anaemia [Not Recovered/Not Resolved]
  - Sinus disorder [Not Recovered/Not Resolved]
  - Arthralgia [Recovered/Resolved with Sequelae]
  - Peripheral swelling [Recovered/Resolved with Sequelae]
  - Fatigue [Not Recovered/Not Resolved]
  - Rheumatoid arthritis [Recovering/Resolving]
  - Condition aggravated [Recovering/Resolving]
  - Pain in extremity [Recovered/Resolved with Sequelae]
